FAERS Safety Report 5995453-1 (Version None)
Quarter: 2008Q4

REPORT INFORMATION
  Report Type: 
  Country: None (occurrence: None)
  Receive Date: 20081212
  Receipt Date: 20081205
  Transmission Date: 20090506
  Serious: Yes (Hospitalization)
  Sender: FDA-Public Use
  Company Number: DE-ABBOTT-08P-062-0487649-00

PATIENT
  Sex: Male
  Weight: 69 kg

DRUGS (6)
  1. HUMIRA [Suspect]
     Indication: ANKYLOSING SPONDYLITIS
     Route: 058
     Dates: start: 20050604, end: 20080815
  2. HUMIRA [Suspect]
     Dates: start: 20081010
  3. NEBIVOLOL [Concomitant]
     Indication: DRUG USE FOR UNKNOWN INDICATION
  4. METOPROLOL [Concomitant]
     Indication: DRUG USE FOR UNKNOWN INDICATION
  5. CA++ [Concomitant]
     Indication: DRUG USE FOR UNKNOWN INDICATION
  6. RISPERIDONE [Concomitant]
     Indication: SCHIZOPHRENIA

REACTIONS (2)
  - ANKYLOSING SPONDYLITIS [None]
  - JOINT DESTRUCTION [None]
